FAERS Safety Report 6588920-3 (Version None)
Quarter: 2010Q1

REPORT INFORMATION
  Report Type: 
  Country: None (occurrence: None)
  Receive Date: 20100218
  Receipt Date: 20100208
  Transmission Date: 20100710
  Serious: Yes (Other)
  Sender: FDA-Public Use
  Company Number: US-JNJCH-2010004032

PATIENT
  Sex: Female

DRUGS (1)
  1. ROLAIDS TAB [Suspect]
     Indication: ABDOMINAL DISCOMFORT
     Dosage: TEXT:UNSPECIFIED
     Route: 048

REACTIONS (3)
  - ABDOMINAL PAIN UPPER [None]
  - NAUSEA [None]
  - VOMITING [None]
